FAERS Safety Report 19862837 (Version 1)
Quarter: 2021Q3

REPORT INFORMATION
  Report Type: Spontaneous
  Country: IT (occurrence: IT)
  Receive Date: 20210921
  Receipt Date: 20210921
  Transmission Date: 20211014
  Serious: Yes (Other)
  Sender: FDA-Public Use
  Company Number: IT-PFIZER INC-202101177720

PATIENT
  Age: 40 Year
  Sex: Female

DRUGS (3)
  1. TRASTUZUMAB. [Suspect]
     Active Substance: TRASTUZUMAB
     Indication: TRIPLE POSITIVE BREAST CANCER
     Dosage: UNK
     Dates: start: 201601
  2. DOCETAXEL. [Suspect]
     Active Substance: DOCETAXEL
     Indication: TRIPLE POSITIVE BREAST CANCER
     Dosage: UNK, CYCLIC (EVERY THREE WEEKS AT STANDARD DOSES, 2 CYCLIC)
     Dates: start: 201601
  3. PERTUZUMAB. [Suspect]
     Active Substance: PERTUZUMAB
     Indication: TRIPLE POSITIVE BREAST CANCER
     Dosage: UNK, CYCLIC (2 CYCLIC)
     Dates: start: 201601

REACTIONS (3)
  - Hypertransaminasaemia [Unknown]
  - Mucosal inflammation [Unknown]
  - Hepatotoxicity [Unknown]

NARRATIVE: CASE EVENT DATE: 2016
